FAERS Safety Report 14004533 (Version 1)
Quarter: 2017Q3

REPORT INFORMATION
  Report Type: Spontaneous
  Country: US (occurrence: US)
  Receive Date: 20170922
  Receipt Date: 20170922
  Transmission Date: 20171128
  Serious: No
  Sender: FDA-Public Use
  Company Number: US-HORIZON-KRY-0101-2017

PATIENT
  Sex: Male

DRUGS (2)
  1. COLCHICINE. [Concomitant]
     Active Substance: COLCHICINE
     Indication: PROPHYLAXIS
     Route: 048
  2. KRYSTEXXA [Suspect]
     Active Substance: PEGLOTICASE
     Indication: GOUT
     Dosage: 8 MG Q2 WEEKS
     Route: 042

REACTIONS (2)
  - Back pain [Recovered/Resolved]
  - Blood uric acid increased [Unknown]
